FAERS Safety Report 24428271 (Version 1)
Quarter: 2024Q4

REPORT INFORMATION
  Report Type: Spontaneous
  Country: US (occurrence: None)
  Receive Date: 20241011
  Receipt Date: 20241011
  Transmission Date: 20250115
  Serious: Yes (Hospitalization)
  Sender: Public
  Company Number: None

PATIENT
  Sex: Female

DRUGS (3)
  1. AMBRISENTAN [Suspect]
     Active Substance: AMBRISENTAN
     Dosage: FREQUENCY : DAILY;?
     Dates: start: 202406
  2. LETAIRIS [Concomitant]
  3. TADLIQ [Concomitant]
     Active Substance: TADALAFIL

REACTIONS (1)
  - Cardiac disorder [None]
